FAERS Safety Report 5959899-X (Version None)
Quarter: 2008Q4

REPORT INFORMATION
  Report Type: 
  Country: None (occurrence: None)
  Receive Date: 20081119
  Receipt Date: 20081119
  Transmission Date: 20090506
  Serious: Yes (Life-Threatening)
  Sender: FDA-Public Use
  Company Number: None

PATIENT
  Sex: Female
  Weight: 67.8 kg

DRUGS (2)
  1. CYCLOPHOSPHAMIDE [Suspect]
     Indication: ACUTE MYELOID LEUKAEMIA
     Dosage: 3315 MG Q 12 IV
     Route: 042
     Dates: start: 20080612, end: 20080615
  2. CYCLOPHOSPHAMIDE [Suspect]
     Indication: BONE MARROW TRANSPLANT
     Dosage: 3315 MG Q 12 IV
     Route: 042
     Dates: start: 20080612, end: 20080615

REACTIONS (7)
  - ABDOMINAL PAIN UPPER [None]
  - ATRIAL HYPERTROPHY [None]
  - CARDIOTOXICITY [None]
  - ECHOCARDIOGRAM ABNORMAL [None]
  - MITRAL VALVE INCOMPETENCE [None]
  - THERAPEUTIC AGENT TOXICITY [None]
  - VENTRICULAR FAILURE [None]
